FAERS Safety Report 20013534 (Version 1)
Quarter: 2021Q4

REPORT INFORMATION
  Report Type: Spontaneous
  Country: US (occurrence: US)
  Receive Date: 20211029
  Receipt Date: 20211029
  Transmission Date: 20220303
  Serious: No
  Sender: FDA-Public Use
  Company Number: US-TAKEDA-2021TUS066636

PATIENT
  Sex: Female
  Weight: 87 kg

DRUGS (2)
  1. CUVITRU [Suspect]
     Active Substance: HUMAN IMMUNOGLOBULIN G
     Indication: Immunodeficiency common variable
     Dosage: 9 GRAM, 1/WEEK
     Dates: start: 20211006, end: 20211006
  2. CUVITRU [Suspect]
     Active Substance: HUMAN IMMUNOGLOBULIN G
     Dosage: 9 GRAM
     Route: 058
     Dates: start: 20211006, end: 20211006

REACTIONS (5)
  - Nausea [Unknown]
  - Constipation [Unknown]
  - Joint swelling [Unknown]
  - Weight increased [Unknown]
  - Vomiting [Unknown]
